FAERS Safety Report 19680462 (Version 3)
Quarter: 2021Q3

REPORT INFORMATION
  Report Type: Report from Study
  Country: US (occurrence: US)
  Receive Date: 20210810
  Receipt Date: 20210816
  Transmission Date: 20211014
  Serious: Yes (Other)
  Sender: FDA-Public Use
  Company Number: US-GILEAD-2021-0543550

PATIENT
  Age: 49 Year
  Sex: Female

DRUGS (2)
  1. AMBRISENTAN [Suspect]
     Active Substance: AMBRISENTAN
     Indication: PRODUCT USED FOR UNKNOWN INDICATION
     Dosage: 10 MG
     Route: 065
     Dates: start: 20180719
  2. AMBRISENTAN [Suspect]
     Active Substance: AMBRISENTAN
     Dosage: 5 MG, QD
     Route: 065
     Dates: start: 20180719

REACTIONS (13)
  - Spinal pain [Not Recovered/Not Resolved]
  - Oedema [Recovered/Resolved]
  - Schizophrenia [Unknown]
  - Hypoaesthesia [Not Recovered/Not Resolved]
  - Drooling [Not Recovered/Not Resolved]
  - Oedema [Not Recovered/Not Resolved]
  - Cerebrovascular accident [Recovered/Resolved]
  - Pulmonary embolism [Not Recovered/Not Resolved]
  - Facial paralysis [Not Recovered/Not Resolved]
  - Night sweats [Not Recovered/Not Resolved]
  - Vision blurred [Unknown]
  - Dyspnoea [Not Recovered/Not Resolved]
  - Tongue disorder [Not Recovered/Not Resolved]

NARRATIVE: CASE EVENT DATE: 20210801
